FAERS Safety Report 18170486 (Version 1)
Quarter: 2020Q3

REPORT INFORMATION
  Report Type: Spontaneous
  Country: JP (occurrence: JP)
  Receive Date: 20200819
  Receipt Date: 20200819
  Transmission Date: 20201103
  Serious: Yes (Other)
  Sender: FDA-Public Use
  Company Number: JP-PFIZER INC-2020318198

PATIENT
  Sex: Male

DRUGS (1)
  1. HALCION [Suspect]
     Active Substance: TRIAZOLAM
     Dosage: 0.25 MG, DAILY
     Route: 048

REACTIONS (6)
  - Dizziness [Unknown]
  - Gastrointestinal somatic symptom disorder [Unknown]
  - Insomnia [Unknown]
  - Poisoning [Unknown]
  - Somnolence [Unknown]
  - Brain injury [Unknown]
